FAERS Safety Report 10091711 (Version 1)
Quarter: 2014Q2

REPORT INFORMATION
  Report Type: Spontaneous
  Country: US (occurrence: US)
  Receive Date: 20140421
  Receipt Date: 20140421
  Transmission Date: 20141212
  Serious: Yes (Hospitalization, Other)
  Sender: FDA-Public Use
  Company Number: US-PURDUE-USA-2002-0000641

PATIENT
  Sex: Female

DRUGS (2)
  1. OXYIR CAPSULES 5 MG [Suspect]
     Indication: PRODUCT USED FOR UNKNOWN INDICATION
     Dosage: UNK, SINGLE
     Route: 030
  2. UNKNOWN [Concomitant]

REACTIONS (4)
  - Overdose [None]
  - Apnoea [None]
  - Stupor [None]
  - Dehydration [None]
